FAERS Safety Report 23553488 (Version 2)
Quarter: 2024Q1

REPORT INFORMATION
  Report Type: Spontaneous
  Country: IT (occurrence: IT)
  Receive Date: 20240222
  Receipt Date: 20240311
  Transmission Date: 20240410
  Serious: Yes (Hospitalization, Other)
  Sender: FDA-Public Use
  Company Number: IT-SANDOZ-SDZ2024IT010460

PATIENT
  Age: 56 Year
  Sex: Female

DRUGS (19)
  1. FULVESTRANT [Suspect]
     Active Substance: FULVESTRANT
     Indication: HER2 positive breast cancer
     Dosage: UNK
     Route: 065
     Dates: start: 202307
  2. LETROZOLE [Suspect]
     Active Substance: LETROZOLE
     Indication: HER2 positive breast cancer
     Dosage: UNK
     Route: 065
     Dates: start: 202205
  3. TRASTUZUMAB [Suspect]
     Active Substance: TRASTUZUMAB
     Indication: HER2 positive breast cancer
     Dosage: UNKNOWN
     Route: 065
     Dates: start: 202206, end: 202210
  4. TRASTUZUMAB [Suspect]
     Active Substance: TRASTUZUMAB
     Dosage: UNK
     Route: 065
     Dates: start: 202307
  5. TRASTUZUMAB [Suspect]
     Active Substance: TRASTUZUMAB
     Dosage: UNK
     Route: 065
     Dates: start: 202205
  6. PERTUZUMAB [Suspect]
     Active Substance: PERTUZUMAB
     Indication: HER2 positive breast cancer
     Dosage: UNKNOWN
     Route: 042
     Dates: start: 202206, end: 202210
  7. PERTUZUMAB [Suspect]
     Active Substance: PERTUZUMAB
     Indication: Breast cancer metastatic
     Dosage: UNK
     Route: 065
     Dates: start: 202307
  8. DENOSUMAB [Suspect]
     Active Substance: DENOSUMAB
     Indication: HER2 positive breast cancer
     Dosage: UNKNOWN
     Route: 065
     Dates: start: 202206, end: 202210
  9. DOCETAXEL [Suspect]
     Active Substance: DOCETAXEL\DOCETAXEL ANHYDROUS
     Indication: HER2 positive breast cancer
     Dosage: UNK
     Route: 065
     Dates: start: 202205
  10. EPIRUBICIN [Suspect]
     Active Substance: EPIRUBICIN
     Indication: HER2 positive breast cancer
     Dosage: UNK
     Route: 065
     Dates: start: 202205
  11. CYCLOPHOSPHAMIDE [Suspect]
     Active Substance: CYCLOPHOSPHAMIDE
     Indication: HER2 positive breast cancer
     Dosage: UNK
     Route: 065
     Dates: start: 202205
  12. PACLITAXEL [Concomitant]
     Active Substance: PACLITAXEL
     Indication: HER2 positive breast cancer
     Dosage: UNK
     Route: 065
     Dates: start: 202206, end: 202210
  13. PACLITAXEL [Concomitant]
     Active Substance: PACLITAXEL
     Indication: Breast cancer metastatic
     Dosage: UNK
     Route: 065
  14. ASPIRIN [Concomitant]
     Active Substance: ASPIRIN
     Indication: Antiplatelet therapy
     Dosage: UNK
     Route: 065
  15. BISOPROLOL [Concomitant]
     Active Substance: BISOPROLOL\BISOPROLOL FUMARATE
     Indication: Drug therapy
     Dosage: 2.5 MG/DAY
     Route: 065
  16. BISOPROLOL [Concomitant]
     Active Substance: BISOPROLOL\BISOPROLOL FUMARATE
     Dosage: 3.75 MG/DAY
     Route: 065
  17. ATORVASTATIN [Concomitant]
     Active Substance: ATORVASTATIN
     Indication: Hypercholesterolaemia
     Dosage: UNKNOWN
     Route: 065
  18. RAMIPRIL [Concomitant]
     Active Substance: RAMIPRIL
     Indication: Breast cancer metastatic
     Dosage: UNK
     Route: 065
  19. RAMIPRIL [Concomitant]
     Active Substance: RAMIPRIL
     Indication: Hypertension

REACTIONS (1)
  - Stress cardiomyopathy [Recovered/Resolved]
